FAERS Safety Report 9295019 (Version 1)
Quarter: 2013Q1

REPORT INFORMATION
  Report Type: Spontaneous
  Country: US (occurrence: None)
  Receive Date: 20121227
  Receipt Date: 20121227
  Transmission Date: 20140127
  Serious: Yes (Other)
  Sender: FDA-Public Use
  Company Number: PHHY2008US10884

PATIENT
  Age: 50 Year
  Sex: Male
  Weight: 70 kg

DRUGS (4)
  1. EXJADE (*CGP 72670*) DISPERSIBLE TABLET, 500MG [Suspect]
     Indication: IRON OVERLOAD
     Route: 048
     Dates: start: 20060417
  2. FOLIC ACID (FOLIC ACID) [Suspect]
  3. METHADONE (METHADONE) [Suspect]
  4. DILAUDID (HYDROMORPHONE HYDROCHLORIDE) [Suspect]

REACTIONS (9)
  - Nephropathy [None]
  - Renal failure [None]
  - Haemoglobin decreased [None]
  - Cardiac murmur [None]
  - Blood pressure decreased [None]
  - Ocular icterus [None]
  - Renal failure chronic [None]
  - Renal impairment [None]
  - Blood creatinine increased [None]
